FAERS Safety Report 25183427 (Version 1)
Quarter: 2025Q2

REPORT INFORMATION
  Report Type: Spontaneous
  Country: US (occurrence: US)
  Receive Date: 20250410
  Receipt Date: 20250410
  Transmission Date: 20250717
  Serious: Yes (Other)
  Sender: BAYER
  Company Number: US-BAYER-2025A047563

PATIENT
  Age: 45 Year
  Sex: Male

DRUGS (6)
  1. NAPROXEN SODIUM [Suspect]
     Active Substance: NAPROXEN SODIUM
  2. KETAMINE [Suspect]
     Active Substance: KETAMINE
  3. AMPHETAMINE [Suspect]
     Active Substance: AMPHETAMINE
  4. MIDOMAFETAMINE [Suspect]
     Active Substance: MIDOMAFETAMINE
  5. TENAMFETAMINE [Suspect]
     Active Substance: TENAMFETAMINE
  6. TEMAZEPAM [Suspect]
     Active Substance: TEMAZEPAM

REACTIONS (1)
  - Drug abuse [None]
